FAERS Safety Report 12627209 (Version 3)
Quarter: 2016Q3

REPORT INFORMATION
  Report Type: Spontaneous
  Country: JP (occurrence: JP)
  Receive Date: 20160805
  Receipt Date: 20160929
  Transmission Date: 20161109
  Serious: Yes (Hospitalization, Other)
  Sender: FDA-Public Use
  Company Number: JP-009507513-1607JPN013075

PATIENT
  Age: 34 Year
  Sex: Female
  Weight: 55 kg

DRUGS (19)
  1. LONASEN [Suspect]
     Active Substance: BLONANSERIN
     Dosage: 8 MG, BID
     Route: 048
     Dates: start: 20160712
  2. BELSOMRA [Suspect]
     Active Substance: SUVOREXANT
     Indication: INSOMNIA
     Dosage: 20 MG, QD
     Route: 048
     Dates: start: 20160118, end: 20160702
  3. BELSOMRA [Suspect]
     Active Substance: SUVOREXANT
     Dosage: 20 MG, QD
     Route: 048
     Dates: start: 20160706
  4. LIMAS [Suspect]
     Active Substance: LITHIUM CARBONATE
     Dosage: DAILY DOSAGE UNKNOWN
     Route: 048
     Dates: start: 20160703, end: 20160703
  5. BELSOMRA [Suspect]
     Active Substance: SUVOREXANT
     Dosage: DIVIDED DOSE FREQUENCY UNKNOWN
     Route: 048
     Dates: start: 20160703, end: 20160703
  6. LIMAS [Suspect]
     Active Substance: LITHIUM CARBONATE
     Indication: SCHIZOPHRENIA
     Dosage: 700 MG, QD
     Route: 048
     Dates: end: 20160702
  7. SENNARIDE [Suspect]
     Active Substance: SENNOSIDES A AND B
     Dosage: 24 MG, QD
     Route: 048
  8. LONASEN [Suspect]
     Active Substance: BLONANSERIN
     Indication: SCHIZOPHRENIA
     Dosage: 4 MG, BID
     Route: 048
     Dates: start: 20160413, end: 20160426
  9. LONASEN [Suspect]
     Active Substance: BLONANSERIN
     Dosage: 8 MG, BID
     Route: 048
     Dates: start: 20160427, end: 20160702
  10. LONASEN [Suspect]
     Active Substance: BLONANSERIN
     Dosage: 4 MG, QD
     Route: 048
     Dates: start: 20160706, end: 20160706
  11. LULLAN [Concomitant]
     Active Substance: PEROSPIRONE HYDROCHLORIDE
     Indication: SCHIZOPHRENIA
     Dosage: 16 MG, TID
     Route: 048
     Dates: end: 20160412
  12. THYRADIN-S [Concomitant]
     Active Substance: LEVOTHYROXINE
     Indication: HYPOPITUITARISM
     Dosage: 50 MICROGRAM, QD
     Route: 048
  13. LONASEN [Suspect]
     Active Substance: BLONANSERIN
     Dosage: UNK, ONCE
     Route: 048
     Dates: start: 20160703, end: 20160703
  14. LONASEN [Suspect]
     Active Substance: BLONANSERIN
     Dosage: 4 MG, BID
     Route: 048
     Dates: start: 20160707, end: 20160711
  15. LULLAN [Concomitant]
     Active Substance: PEROSPIRONE HYDROCHLORIDE
     Dosage: 10.7 MG, TID
     Route: 048
     Dates: start: 20160413, end: 20160426
  16. LULLAN [Concomitant]
     Active Substance: PEROSPIRONE HYDROCHLORIDE
     Dosage: 16 MG, QD
     Route: 048
     Dates: start: 20160427, end: 20160517
  17. DEPAS [Concomitant]
     Active Substance: ETIZOLAM
     Indication: HEADACHE
     Dosage: 0.5 MG, AS NEEDED
     Route: 048
     Dates: end: 20160628
  18. SENNARIDE [Suspect]
     Active Substance: SENNOSIDES A AND B
     Indication: CONSTIPATION
     Dosage: 24 MG, QD
     Route: 048
     Dates: end: 20160702
  19. SENNARIDE [Suspect]
     Active Substance: SENNOSIDES A AND B
     Dosage: UNK, ONCE
     Route: 048
     Dates: start: 20160703, end: 20160703

REACTIONS (6)
  - Psychotic disorder [Not Recovered/Not Resolved]
  - Headache [Recovering/Resolving]
  - Dysphagia [Unknown]
  - Pneumonia aspiration [Recovered/Resolved]
  - Weight increased [Not Recovered/Not Resolved]
  - Overdose [Unknown]

NARRATIVE: CASE EVENT DATE: 201604
